FAERS Safety Report 11071972 (Version 1)
Quarter: 2015Q2

REPORT INFORMATION
  Report Type: Spontaneous
  Country: US (occurrence: US)
  Receive Date: 20150428
  Receipt Date: 20150428
  Transmission Date: 20150821
  Serious: No
  Sender: FDA-Public Use
  Company Number: US-BAUSCH-BL-2014-003014

PATIENT
  Age: 60 Year
  Sex: Female
  Weight: 57.66 kg

DRUGS (4)
  1. RETAINE [Concomitant]
     Indication: PRODUCT USED FOR UNKNOWN INDICATION
  2. SOOTHE [Concomitant]
     Active Substance: BISMUTH SUBSALICYLATE\GLYCERIN\PROPYLENE GLYCOL
     Indication: PRODUCT USED FOR UNKNOWN INDICATION
  3. TEARS NATURALE [Concomitant]
     Indication: PRODUCT USED FOR UNKNOWN INDICATION
  4. ALREX [Suspect]
     Active Substance: LOTEPREDNOL ETABONATE
     Indication: SJOGREN^S SYNDROME
     Route: 047

REACTIONS (4)
  - Eye pain [Unknown]
  - Off label use [Unknown]
  - Vision blurred [Unknown]
  - Medication dilution [Unknown]
